FAERS Safety Report 6929178-2 (Version None)
Quarter: 2010Q3

REPORT INFORMATION
  Report Type: 
  Country: None (occurrence: None)
  Receive Date: 20100813
  Receipt Date: 20100729
  Transmission Date: 20110219
  Serious: Yes (Hospitalization)
  Sender: FDA-Public Use
  Company Number: 015714

PATIENT
  Sex: Male

DRUGS (8)
  1. CERTOLIZUMAB PEGOL (CERTOLIZUMAB PEGOL) [Suspect]
     Indication: RHEUMATOID ARTHRITIS
     Dosage: 200 MG 1X/2 WEEKS SUBCUTANEOUS, 200 MG 1X/2 WEEKS SUBCUTANEOUS
     Route: 059
     Dates: start: 20100304
  2. CERTOLIZUMAB PEGOL (CERTOLIZUMAB PEGOL) [Suspect]
     Indication: RHEUMATOID ARTHRITIS
     Dosage: 200 MG 1X/2 WEEKS SUBCUTANEOUS, 200 MG 1X/2 WEEKS SUBCUTANEOUS
     Route: 059
     Dates: start: 20100722
  3. METHOTREXATE [Concomitant]
  4. LANSOPRAZOLE [Concomitant]
  5. AMLODIPINE BESYLATE [Concomitant]
  6. CANDESARTAN CILEXETIL [Concomitant]
  7. RISEDRONATE SODIUM [Concomitant]
  8. MELOXICAM [Concomitant]

REACTIONS (1)
  - NASOPHARYNGITIS [None]
